FAERS Safety Report 14930830 (Version 3)
Quarter: 2018Q2

REPORT INFORMATION
  Report Type: Spontaneous
  Country: JP (occurrence: JP)
  Receive Date: 20180524
  Receipt Date: 20180621
  Transmission Date: 20180711
  Serious: Yes (Other)
  Sender: FDA-Public Use
  Company Number: JP-AMGEN-JPNNI2018069741

PATIENT
  Age: 74 Year
  Sex: Female
  Weight: 42 kg

DRUGS (10)
  1. GASTROM [Concomitant]
     Active Substance: ECABET SODIUM
     Indication: GASTRITIS
     Dosage: 3 G, BID
     Route: 048
  2. POSTERISAN [Concomitant]
     Active Substance: LIDOCAINE
     Indication: HAEMORRHOIDS
     Dosage: UNK, BID
     Route: 050
  3. CALCIUM LACTATE [Concomitant]
     Active Substance: CALCIUM LACTATE
     Dosage: 2 G, BID
     Route: 048
  4. LENDORMIN DAINIPPO [Concomitant]
     Active Substance: BROTIZOLAM
     Dosage: 25 MG, QD
     Route: 048
  5. CALFINA [Concomitant]
     Active Substance: ALFACALCIDOL
     Indication: OSTEOPOROSIS
     Dosage: 1 MUG, QD
     Route: 048
  6. IRBETAN [Concomitant]
     Active Substance: IRBESARTAN
     Indication: HYPERTENSION
     Dosage: 50 MG, QD
     Route: 048
  7. LOXONIN [Concomitant]
     Active Substance: LOXOPROFEN SODIUM
     Dosage: 1 DF, QD
     Route: 050
  8. RANMARK [Suspect]
     Active Substance: DENOSUMAB
     Indication: METASTASES TO BONE
     Dosage: UNK
     Route: 065
     Dates: start: 2014, end: 201804
  9. SHAKUYAKUKANZOTO [Concomitant]
     Active Substance: HERBALS
     Dosage: 6 G, BID
     Route: 048
  10. FASLODEX [Concomitant]
     Active Substance: FULVESTRANT
     Indication: BREAST CANCER
     Dosage: 250 MG, UNK
     Route: 030

REACTIONS (1)
  - Osteonecrosis of jaw [Recovering/Resolving]

NARRATIVE: CASE EVENT DATE: 20170329
